FAERS Safety Report 5772178-9 (Version None)
Quarter: 2008Q2

REPORT INFORMATION
  Report Type: 
  Country: None (occurrence: None)
  Receive Date: 20080610
  Receipt Date: 20080528
  Transmission Date: 20081010
  Serious: Yes (Other)
  Sender: FDA-Public Use
  Company Number: CIP08000966

PATIENT
  Age: 86 Year
  Sex: Female

DRUGS (5)
  1. ACTONEL [Suspect]
     Dosage: 35 MG, ORAL
     Route: 048
     Dates: start: 20060101
  2. LOVASTATIN [Concomitant]
  3. ATENOLOL [Concomitant]
  4. LOVASTATIN [Concomitant]
  5. ATENOLOL [Concomitant]

REACTIONS (2)
  - FALL [None]
  - HIP FRACTURE [None]
